FAERS Safety Report 4611625-2 (Version None)
Quarter: 2005Q1

REPORT INFORMATION
  Report Type: 
  Country: None (occurrence: None)
  Receive Date: 20050316
  Receipt Date: 20050316
  Transmission Date: 20050727
  Serious: No
  Sender: FDA-Public Use
  Company Number: None

PATIENT
  Age: 56 Year
  Sex: Male
  Weight: 66.2 kg

DRUGS (4)
  1. RITUXAN [Suspect]
     Indication: LYMPHOMA
     Dosage: 700 MG IV  Q3 WEEKS X 8
     Route: 042
     Dates: start: 20040113, end: 20040608
  2. CYTOXAN [Concomitant]
  3. NOVANTRONE [Concomitant]
  4. VINCRISTINE [Concomitant]

REACTIONS (5)
  - DIZZINESS [None]
  - FATIGUE [None]
  - MUCOSAL INFLAMMATION [None]
  - PANCYTOPENIA [None]
  - WEIGHT DECREASED [None]
